FAERS Safety Report 18822424 (Version 1)
Quarter: 2021Q1

REPORT INFORMATION
  Report Type: Spontaneous
  Country: CN (occurrence: CN)
  Receive Date: 20210202
  Receipt Date: 20210202
  Transmission Date: 20210419
  Serious: Yes (Other)
  Sender: FDA-Public Use
  Company Number: CN-PFIZER INC-2021077451

PATIENT
  Age: 13 Year
  Sex: Male
  Weight: 42.8 kg

DRUGS (8)
  1. PREDNISONE ACETATE [Suspect]
     Active Substance: PREDNISONE ACETATE
     Indication: HENOCH-SCHONLEIN PURPURA NEPHRITIS
     Dosage: 25 MG, 2X/DAY
     Route: 048
     Dates: start: 20201218, end: 20201220
  2. PREDNISONE ACETATE [Suspect]
     Active Substance: PREDNISONE ACETATE
     Dosage: 20 MG, 2X/DAY
     Route: 048
     Dates: start: 20201221, end: 20201223
  3. SOLU?MEDROL [Suspect]
     Active Substance: METHYLPREDNISOLONE SODIUM SUCCINATE
     Indication: HENOCH-SCHONLEIN PURPURA NEPHRITIS
     Dosage: 40 MG, 2X/DAY
     Route: 041
     Dates: start: 20201214, end: 20201217
  4. SOLU?MEDROL [Suspect]
     Active Substance: METHYLPREDNISOLONE SODIUM SUCCINATE
     Dosage: 40 MG, 1X/DAY
     Route: 041
     Dates: start: 20210109, end: 20210114
  5. PREDNISONE ACETATE [Suspect]
     Active Substance: PREDNISONE ACETATE
     Dosage: 10 MG, 2X/DAY
     Route: 048
     Dates: start: 20201228, end: 20201231
  6. PREDNISONE ACETATE [Suspect]
     Active Substance: PREDNISONE ACETATE
     Dosage: 5 MG, 1X/DAY
     Route: 048
     Dates: start: 20210105, end: 20210108
  7. PREDNISONE ACETATE [Suspect]
     Active Substance: PREDNISONE ACETATE
     Dosage: 15 MG, 2X/DAY
     Route: 048
     Dates: start: 20201224, end: 20201227
  8. PREDNISONE ACETATE [Suspect]
     Active Substance: PREDNISONE ACETATE
     Dosage: 5 MG, 2X/DAY
     Route: 048
     Dates: start: 20210101, end: 20210104

REACTIONS (1)
  - Ocular hypertension [Recovering/Resolving]

NARRATIVE: CASE EVENT DATE: 20210114
